FAERS Safety Report 9822292 (Version 3)
Quarter: 2014Q1

REPORT INFORMATION
  Report Type: Spontaneous
  Country: US (occurrence: US)
  Receive Date: 20140116
  Receipt Date: 20140203
  Transmission Date: 20141002
  Serious: Yes (Hospitalization, Other)
  Sender: FDA-Public Use
  Company Number: US-ASTELLAS-2014US000314

PATIENT
  Sex: Female

DRUGS (2)
  1. TARCEVA [Suspect]
     Indication: LUNG NEOPLASM MALIGNANT
     Dosage: 150 MG, UID/QD
     Dates: start: 20130317
  2. TARCEVA [Suspect]
     Dosage: 25 MG, BID
     Route: 048
     Dates: start: 20130317

REACTIONS (4)
  - Incorrect dose administered [Unknown]
  - Pneumonia [Unknown]
  - Fall [Unknown]
  - Rib fracture [Unknown]
